FAERS Safety Report 7485934-6 (Version None)
Quarter: 2011Q2

REPORT INFORMATION
  Report Type: 
  Country: None (occurrence: None)
  Receive Date: 20110517
  Receipt Date: 20110401
  Transmission Date: 20111010
  Serious: Yes (Disabling, Other)
  Sender: FDA-Public Use
  Company Number: US-BAYER-2011-012448

PATIENT
  Sex: Female

DRUGS (32)
  1. MORPHINE [Concomitant]
     Indication: PAIN
     Dosage: 30 MG, BID
     Dates: start: 20080101
  2. EPOGEN [Concomitant]
     Dosage: UNK
     Dates: start: 20010101
  3. NEURONTIN [Concomitant]
  4. LISINOPRIL [Concomitant]
  5. RENAGEL [Concomitant]
  6. ARANESP [Concomitant]
  7. CALCITRIOL [Concomitant]
     Dosage: 0.25 MG, QD
  8. PRILOSEC [Concomitant]
  9. ASPIRIN [Concomitant]
  10. IRON [IRON] [Concomitant]
     Dosage: UNK
     Dates: start: 20010101
  11. PHOSLO [Concomitant]
  12. LEXAPRO [Concomitant]
  13. NEPHROVITE [VIT C,VIT H,B5,B12,B9,B3,B6,B2,B1 HCL] [Concomitant]
  14. SYNTHROID [Concomitant]
  15. OMNISCAN [Suspect]
     Indication: NUCLEAR MAGNETIC RESONANCE IMAGING
     Dosage: UNK
     Route: 042
     Dates: start: 20051027, end: 20051027
  16. CLONAZEPAM [Concomitant]
     Indication: ANXIETY
     Dosage: 0.5 MG, Q8H
  17. COUMADIN [Concomitant]
  18. MAGNEVIST [Suspect]
     Indication: NUCLEAR MAGNETIC RESONANCE IMAGING BRAIN
     Dosage: UNK UNK, ONCE
     Route: 042
     Dates: start: 20030808, end: 20030808
  19. MAGNEVIST [Suspect]
     Indication: NUCLEAR MAGNETIC RESONANCE IMAGING
     Dosage: UNK UNK, ONCE
     Route: 042
     Dates: start: 20030812, end: 20030812
  20. MAGNEVIST [Suspect]
     Indication: ANGIOGRAM
     Dosage: UNK
     Dates: start: 20050412, end: 20050412
  21. MAGNEVIST [Suspect]
     Indication: CONVULSION
     Dosage: 20 ML, ONCE
     Route: 042
     Dates: start: 20060510, end: 20060510
  22. OMNISCAN [Suspect]
     Indication: ANGIOGRAM
  23. OPTIMARK [Suspect]
     Indication: PRODUCT USED FOR UNKNOWN INDICATION
  24. CALCIUM CARBONATE [Concomitant]
  25. PLAVIX [Concomitant]
  26. FOLIC ACID [Concomitant]
  27. OMNISCAN [Suspect]
     Indication: ABDOMINAL PAIN
  28. GABAPENTIN [Concomitant]
     Indication: NEUROPATHY PERIPHERAL
     Dosage: 300 MG, BID
  29. DILANTIN [Concomitant]
  30. TOPROL-XL [Concomitant]
  31. SENSIPAR [Concomitant]
  32. ZOCOR [Concomitant]

REACTIONS (14)
  - JOINT CONTRACTURE [None]
  - SKIN TIGHTNESS [None]
  - PAIN [None]
  - MUSCLE CONTRACTURE [None]
  - OEDEMA PERIPHERAL [None]
  - JOINT RANGE OF MOTION DECREASED [None]
  - ABASIA [None]
  - EXTREMITY CONTRACTURE [None]
  - SKIN INDURATION [None]
  - SKIN EXFOLIATION [None]
  - NEPHROGENIC SYSTEMIC FIBROSIS [None]
  - ANXIETY [None]
  - SKIN HYPERPIGMENTATION [None]
  - SKIN HYPERTROPHY [None]
